FAERS Safety Report 10413999 (Version 2)
Quarter: 2015Q3

REPORT INFORMATION
  Report Type: Spontaneous
  Country: US (occurrence: US)
  Receive Date: 20140827
  Receipt Date: 20150813
  Transmission Date: 20151125
  Serious: No
  Sender: FDA-Public Use
  Company Number: US-GALDERMA-US14001684

PATIENT
  Sex: Male

DRUGS (6)
  1. FORTESTA [Concomitant]
     Active Substance: TESTOSTERONE
     Indication: BLOOD TESTOSTERONE DECREASED
     Route: 061
  2. METROGEL [Suspect]
     Active Substance: METRONIDAZOLE
     Indication: ROSACEA
     Dosage: 1%
     Route: 061
     Dates: start: 2009, end: 201404
  3. BASIS BAR SOAP [Concomitant]
     Indication: THERAPEUTIC SKIN CARE TOPICAL
     Route: 061
     Dates: start: 2004
  4. LUBRIDERM MOISTURIZER [Concomitant]
     Indication: DRY SKIN PROPHYLAXIS
     Route: 061
  5. CORN HUSKERS LOTION [Concomitant]
     Indication: DRY SKIN PROPHYLAXIS
     Route: 061
  6. METRONIDAZOLE GEL, 1% [Concomitant]
     Active Substance: METRONIDAZOLE
     Indication: ROSACEA
     Dosage: 1%
     Route: 061
     Dates: start: 201404, end: 20140502

REACTIONS (6)
  - Feeling abnormal [Recovering/Resolving]
  - Hypoaesthesia [Recovering/Resolving]
  - Limb discomfort [Recovering/Resolving]
  - Neuralgia [Recovering/Resolving]
  - Paraesthesia [Recovering/Resolving]
  - Sensory loss [Recovering/Resolving]

NARRATIVE: CASE EVENT DATE: 2009
